FAERS Safety Report 7222607-9 (Version None)
Quarter: 2011Q1

REPORT INFORMATION
  Report Type: 
  Country: None (occurrence: None)
  Receive Date: 20110112
  Receipt Date: 20110105
  Transmission Date: 20110831
  Serious: Yes (Other)
  Sender: FDA-Public Use
  Company Number: NL-PFIZER INC-2010157744

PATIENT
  Age: 60 Year
  Sex: Male

DRUGS (5)
  1. PIPERACILLIN AND TAZOBACTAM [Concomitant]
  2. CIPROFLOXACIN [Concomitant]
     Dosage: UNK
  3. METRONIDAZOLE [Concomitant]
     Dosage: UNK
  4. ANIDULAFUNGIN [Suspect]
     Indication: BACTERIAL INFECTION
     Dosage: UNK
  5. VANCOMYCIN [Concomitant]
     Dosage: UNK

REACTIONS (9)
  - RECTAL OBSTRUCTION [None]
  - EMPYEMA [None]
  - PERITONITIS BACTERIAL [None]
  - MEDIASTINITIS [None]
  - CONDITION AGGRAVATED [None]
  - ACUTE RESPIRATORY DISTRESS SYNDROME [None]
  - OESOPHAGEAL PERFORATION [None]
  - RENAL FAILURE ACUTE [None]
  - ANURIA [None]
